FAERS Safety Report 5571945-4 (Version None)
Quarter: 2007Q4

REPORT INFORMATION
  Report Type: 
  Country: None (occurrence: None)
  Receive Date: 20071221
  Receipt Date: 20071220
  Transmission Date: 20080405
  Serious: Yes (Hospitalization)
  Sender: FDA-Public Use
  Company Number: NL-PURDUE-GBR_2007_0003271

PATIENT
  Age: 84 Year
  Sex: Female

DRUGS (1)
  1. OXYCONTIN [Suspect]
     Indication: DRUG USE FOR UNKNOWN INDICATION
     Dosage: 5 MG, DAILY
     Route: 065
     Dates: start: 20040716, end: 20040716

REACTIONS (4)
  - HEART RATE DECREASED [None]
  - MALAISE [None]
  - NAUSEA [None]
  - SHOCK [None]
